FAERS Safety Report 17113457 (Version 1)
Quarter: 2019Q4

REPORT INFORMATION
  Report Type: Spontaneous
  Country: JP (occurrence: JP)
  Receive Date: 20191205
  Receipt Date: 20191205
  Transmission Date: 20200122
  Serious: Yes (Disabling)
  Sender: FDA-Public Use
  Company Number: JP-SAKK-2019SA334429AA

PATIENT

DRUGS (16)
  1. ZALTRAP [Suspect]
     Active Substance: ZIV-AFLIBERCEPT
     Dosage: UNK UNK, 1X
     Route: 041
     Dates: start: 20190927, end: 20190927
  2. ZALTRAP [Suspect]
     Active Substance: ZIV-AFLIBERCEPT
     Dosage: UNK UNK, 1X
     Route: 041
     Dates: start: 20191010, end: 20191010
  3. 5-FU [FLUOROURACIL] [Concomitant]
     Active Substance: FLUOROURACIL
     Dosage: UNK UNK, 1X
     Route: 065
     Dates: start: 20191010, end: 20191010
  4. IRINOTECAN [Suspect]
     Active Substance: IRINOTECAN
     Indication: PRODUCT USED FOR UNKNOWN INDICATION
     Dosage: UNK UNK, 1X
     Route: 065
     Dates: start: 20191025, end: 20191025
  5. LEUCOVORIN CA [Concomitant]
     Active Substance: LEUCOVORIN CALCIUM
     Dosage: UNK UNK, 1X
     Route: 065
     Dates: start: 20190927, end: 20190927
  6. 5-FU [FLUOROURACIL] [Concomitant]
     Active Substance: FLUOROURACIL
     Dosage: UNK UNK, 1X
     Route: 065
     Dates: start: 20190913, end: 20190913
  7. 5-FU [FLUOROURACIL] [Concomitant]
     Active Substance: FLUOROURACIL
     Indication: PRODUCT USED FOR UNKNOWN INDICATION
     Dosage: UNK UNK, 1X
     Route: 065
     Dates: start: 20191025, end: 20191025
  8. ZALTRAP [Suspect]
     Active Substance: ZIV-AFLIBERCEPT
     Dosage: UNK UNK, 1X
     Route: 041
     Dates: start: 20190913, end: 20190913
  9. IRINOTECAN [Suspect]
     Active Substance: IRINOTECAN
     Dosage: UNK UNK, 1X
     Route: 065
     Dates: start: 20190927, end: 20190927
  10. IRINOTECAN [Suspect]
     Active Substance: IRINOTECAN
     Dosage: UNK UNK, 1X
     Route: 065
     Dates: start: 20190913, end: 20190913
  11. 5-FU [FLUOROURACIL] [Concomitant]
     Active Substance: FLUOROURACIL
     Dosage: UNK UNK, 1X
     Route: 065
     Dates: start: 20190927, end: 20190927
  12. IRINOTECAN [Suspect]
     Active Substance: IRINOTECAN
     Dosage: UNK UNK, 1X
     Route: 065
     Dates: start: 20191010, end: 20191010
  13. ZALTRAP [Suspect]
     Active Substance: ZIV-AFLIBERCEPT
     Indication: COLON CANCER
     Dosage: UNK UNK, 1X
     Route: 041
     Dates: start: 20191025, end: 20191025
  14. LEUCOVORIN CA [Concomitant]
     Active Substance: LEUCOVORIN CALCIUM
     Dosage: UNK UNK, 1X
     Route: 065
     Dates: start: 20190913, end: 20190913
  15. LEUCOVORIN CA [Concomitant]
     Active Substance: LEUCOVORIN CALCIUM
     Dosage: UNK UNK, 1X
     Route: 065
     Dates: start: 20191010, end: 20191010
  16. LEUCOVORIN CA [Concomitant]
     Active Substance: LEUCOVORIN CALCIUM
     Indication: PRODUCT USED FOR UNKNOWN INDICATION
     Dosage: UNK UNK, 1X
     Route: 065
     Dates: start: 20191025, end: 20191025

REACTIONS (1)
  - Hepatic function abnormal [Unknown]

NARRATIVE: CASE EVENT DATE: 201911
